FAERS Safety Report 9891056 (Version 1)
Quarter: 2014Q1

REPORT INFORMATION
  Report Type: Spontaneous
  Country: US (occurrence: None)
  Receive Date: 20140211
  Receipt Date: 20140211
  Transmission Date: 20141002
  Serious: Yes (Hospitalization)
  Sender: FDA-Public Use
  Company Number: None

PATIENT
  Age: 60 Year
  Sex: Female
  Weight: 59.3 kg

DRUGS (5)
  1. SUNITIMIB MALEATE [Suspect]
     Dates: start: 20140121
  2. COLACE [Concomitant]
  3. GABAPENTIN [Concomitant]
  4. IBUPROFEN [Concomitant]
  5. OXYCODONE [Concomitant]

REACTIONS (4)
  - Fatigue [None]
  - Anaemia [None]
  - Hypoglossal nerve disorder [None]
  - Tongue paralysis [None]
